FAERS Safety Report 10628920 (Version 2)
Quarter: 2016Q2

REPORT INFORMATION
  Report Type: Spontaneous
  Country: US (occurrence: US)
  Receive Date: 20141205
  Receipt Date: 20160617
  Transmission Date: 20160815
  Serious: No
  Sender: FDA-Public Use
  Company Number: US-BRISTOL-MYERS SQUIBB COMPANY-21436084

PATIENT
  Sex: Female
  Weight: 60.32 kg

DRUGS (1)
  1. KENALOG-40 [Suspect]
     Active Substance: TRIAMCINOLONE ACETONIDE
     Indication: RASH
     Route: 065

REACTIONS (3)
  - Arthropathy [Unknown]
  - Oedema peripheral [Unknown]
  - Injection site inflammation [Unknown]
